FAERS Safety Report 16891078 (Version 1)
Quarter: 2019Q4

REPORT INFORMATION
  Report Type: Spontaneous
  Country: US (occurrence: US)
  Receive Date: 20191007
  Receipt Date: 20191007
  Transmission Date: 20200122
  Serious: No
  Sender: FDA-Public Use
  Company Number: US-BEH-2019107611

PATIENT
  Sex: Female

DRUGS (1)
  1. HIZENTRA [Suspect]
     Active Substance: HUMAN IMMUNOGLOBULIN G
     Indication: PYREXIA
     Dosage: 10 GRAM, QW
     Route: 058
     Dates: start: 20190621

REACTIONS (5)
  - Fatigue [Unknown]
  - Product use in unapproved indication [Unknown]
  - No adverse event [Unknown]
  - Decreased appetite [Unknown]
  - Pruritus [Unknown]
